FAERS Safety Report 11456293 (Version 1)
Quarter: 2015Q3

REPORT INFORMATION
  Report Type: Spontaneous
  Country: CH (occurrence: CH)
  Receive Date: 20150903
  Receipt Date: 20150903
  Transmission Date: 20151125
  Serious: Yes (Other)
  Sender: FDA-Public Use
  Company Number: PHHY2014CH094505

PATIENT

DRUGS (3)
  1. CELEBREX [Suspect]
     Active Substance: CELECOXIB
     Indication: AMYGDALOTOMY
     Dosage: 200 MG, BID
     Route: 048
     Dates: start: 20140510, end: 20140520
  2. AMOXICILLIN AND CLAVULANATE POTASSIUM [Suspect]
     Active Substance: AMOXICILLIN\CLAVULANATE POTASSIUM
     Indication: AMYGDALOTOMY
     Dosage: 625 MG, TID
     Route: 048
     Dates: start: 20140507, end: 20140517
  3. DAFALGAN [Suspect]
     Active Substance: ACETAMINOPHEN
     Indication: AMYGDALOTOMY
     Dosage: 1 G, PRN
     Route: 048

REACTIONS (2)
  - Abortion induced [Recovered/Resolved]
  - Exposure during pregnancy [Recovered/Resolved]

NARRATIVE: CASE EVENT DATE: 20140507
